FAERS Safety Report 4938883-9 (Version None)
Quarter: 2006Q1

REPORT INFORMATION
  Report Type: 
  Country: None (occurrence: None)
  Receive Date: 20060309
  Receipt Date: 20051205
  Transmission Date: 20060701
  Serious: Yes (Death)
  Sender: FDA-Public Use
  Company Number: US-MERCK-0512USA00700

PATIENT
  Age: 49 Year
  Sex: Male
  Weight: 159 kg

DRUGS (1)
  1. VIOXX [Suspect]
     Route: 048

REACTIONS (6)
  - ARTERIOSCLEROSIS [None]
  - CARDIOMEGALY [None]
  - DEEP VEIN THROMBOSIS [None]
  - EMPHYSEMA [None]
  - INTESTINAL INFARCTION [None]
  - PERITONEAL ADHESIONS [None]
